FAERS Safety Report 23946329 (Version 1)
Quarter: 2024Q2

REPORT INFORMATION
  Report Type: Spontaneous
  Country: CA (occurrence: CA)
  Receive Date: 20240606
  Receipt Date: 20240606
  Transmission Date: 20240716
  Serious: Yes (Other)
  Sender: FDA-Public Use
  Company Number: CA-PFIZER INC-202400186627

PATIENT
  Age: 67 Year
  Sex: Male

DRUGS (11)
  1. ACYCLOVIR [Suspect]
     Active Substance: ACYCLOVIR
  2. FLUCONAZOLE [Suspect]
     Active Substance: FLUCONAZOLE
  3. LEVOFLOXACIN [Suspect]
     Active Substance: LEVOFLOXACIN
  4. SODIUM BICARBONATE [Suspect]
     Active Substance: SODIUM BICARBONATE
  5. TRANEXAMIC ACID [Suspect]
     Active Substance: TRANEXAMIC ACID
  6. ALFUZOSIN [Suspect]
     Active Substance: ALFUZOSIN
  7. AMOXICILLIN\CLAVULANATE POTASSIUM [Suspect]
     Active Substance: AMOXICILLIN\CLAVULANATE POTASSIUM
  8. ATOVAQUONE [Suspect]
     Active Substance: ATOVAQUONE
     Route: 048
  9. POTASSIUM PHOSPHATE, MONOBASIC [Suspect]
     Active Substance: POTASSIUM PHOSPHATE, MONOBASIC
  10. SODIUM PHOSPHATE [Suspect]
     Active Substance: SODIUM PHOSPHATE
  11. ZOLPIDEM TARTRATE [Suspect]
     Active Substance: ZOLPIDEM TARTRATE

REACTIONS (1)
  - Febrile neutropenia [Unknown]
